FAERS Safety Report 6009786-6 (Version None)
Quarter: 2008Q4

REPORT INFORMATION
  Report Type: 
  Country: None (occurrence: None)
  Receive Date: 20081217
  Receipt Date: 20081119
  Transmission Date: 20090506
  Serious: No
  Sender: FDA-Public Use
  Company Number: US-BAYER-200839115NA

PATIENT

DRUGS (1)
  1. YAZ [Suspect]

REACTIONS (1)
  - NO ADVERSE EVENT [None]
